FAERS Safety Report 18983104 (Version 1)
Quarter: 2021Q1

REPORT INFORMATION
  Report Type: Spontaneous
  Country: US (occurrence: US)
  Receive Date: 20210228
  Receipt Date: 20210228
  Transmission Date: 20210420
  Serious: Yes (Hospitalization)
  Sender: FDA-Public Use
  Company Number: None

PATIENT
  Age: 38 Year
  Sex: Male
  Weight: 69.75 kg

DRUGS (1)
  1. PROPYLENE GLYCOL [Suspect]
     Active Substance: PROPYLENE GLYCOL
     Indication: PRODUCT USED FOR UNKNOWN INDICATION
     Dates: start: 20101105, end: 20210215

REACTIONS (5)
  - Proctalgia [None]
  - Gastrointestinal pain [None]
  - Pain [None]
  - Drug hypersensitivity [None]
  - Rash [None]

NARRATIVE: CASE EVENT DATE: 20131105
